FAERS Safety Report 9813260 (Version 2)
Quarter: 2014Q1

REPORT INFORMATION
  Report Type: Spontaneous
  Country: US (occurrence: US)
  Receive Date: 20140113
  Receipt Date: 20140113
  Transmission Date: 20141002
  Serious: Yes (Other)
  Sender: FDA-Public Use
  Company Number: US-UCBSA-085964

PATIENT
  Age: 43 Year
  Sex: Female
  Weight: 65.3 kg

DRUGS (7)
  1. CIMZIA [Suspect]
     Indication: CROHN^S DISEASE
     Dosage: 200MG/ML, 1ML AT 2 DIFFERENT SITES ONCE A MONTH
     Route: 058
     Dates: start: 20130501, end: 20130509
  2. HUMIRA [Suspect]
     Dosage: UNKNOWN DOSE
  3. ZOLOFT [Concomitant]
  4. ZOMIG [Concomitant]
     Indication: HEADACHE
  5. PHENERGAN [Concomitant]
     Indication: NAUSEA
  6. FLUTICASONE NASAL SPRAY [Concomitant]
     Dosage: 2 SPRAYS DAILY PRN
  7. UCERIS [Concomitant]
     Indication: CROHN^S DISEASE
     Route: 048
     Dates: start: 20130403, end: 2013

REACTIONS (2)
  - Rash [Recovered/Resolved]
  - Urticaria [Recovered/Resolved]
